FAERS Safety Report 23812640 (Version 1)
Quarter: 2024Q2

REPORT INFORMATION
  Report Type: Spontaneous
  Country: CN (occurrence: CN)
  Receive Date: 20240503
  Receipt Date: 20240503
  Transmission Date: 20240716
  Serious: Yes (Hospitalization)
  Sender: FDA-Public Use
  Company Number: CN-ELI_LILLY_AND_COMPANY-CN202404012988

PATIENT
  Age: 15 Year
  Sex: Male

DRUGS (3)
  1. OLANZAPINE [Suspect]
     Active Substance: OLANZAPINE
     Indication: Affect lability
     Dosage: STRENGTH: 2.5MG, DAILY AT NIGHT,?DAILY DOSE: 2.5 MILLIGRAM
     Route: 048
     Dates: start: 20240329
  2. OLANZAPINE [Suspect]
     Active Substance: OLANZAPINE
     Indication: Affect lability
     Dosage: HIS DOSE WAS CHANGED TO 10MG, DAILY AT NIGHT AND ON SAME DAY?DAILY DOSE: 10 MILLIGRAM
     Route: 048
     Dates: start: 20240407
  3. OLANZAPINE [Suspect]
     Active Substance: OLANZAPINE
     Indication: Affect lability
     Dosage: 5MG, DAILY?DAILY DOSE: 5 MILLIGRAM
     Route: 048
     Dates: start: 20240408, end: 20240411

REACTIONS (4)
  - Restlessness [Recovering/Resolving]
  - Irritability [Recovering/Resolving]
  - Anxiety [Recovering/Resolving]
  - Self-destructive behaviour [Recovering/Resolving]

NARRATIVE: CASE EVENT DATE: 20240407
